FAERS Safety Report 4879691-7 (Version None)
Quarter: 2006Q1

REPORT INFORMATION
  Report Type: 
  Country: None (occurrence: None)
  Receive Date: 20060111
  Receipt Date: 20060103
  Transmission Date: 20060701
  Serious: Yes (Life-Threatening)
  Sender: FDA-Public Use
  Company Number: 2005111560

PATIENT
  Age: 75 Year
  Sex: Female
  Weight: 45 kg

DRUGS (5)
  1. AMLODIPINE [Suspect]
     Indication: ILL-DEFINED DISORDER
     Dosage: 5 MG (5 MG, 1 IN 1 D), ORAL
     Route: 048
     Dates: start: 20030101
  2. PREDNISONE TAB [Suspect]
     Indication: ILL-DEFINED DISORDER
     Dosage: 5 MG (5 MG, 1 IN 1 D), ORAL
     Route: 048
     Dates: start: 20030101
  3. THALIDOMIDE (THALIDOMIDE) [Suspect]
     Indication: ILL-DEFINED DISORDER
     Dosage: 50 MG (INTERVAL: EVERY DAY), ORAL
     Route: 048
     Dates: start: 20050211
  4. ACTONEL [Suspect]
     Indication: ILL-DEFINED DISORDER
     Dosage: 35 MG (INTERVAL: EVERY DAY), ORAL
     Route: 048
     Dates: start: 20030101
  5. CACIT D3 (CALCIUM CARABONATE, COLECALCIFEROL) [Suspect]
     Indication: ILL-DEFINED DISORDER
     Dosage: 1 DOSE FORM (UNIT DOSE 1000 MG/880 IU), ORAL
     Route: 048
     Dates: start: 20030101

REACTIONS (1)
  - PHLEBITIS [None]
